FAERS Safety Report 10521960 (Version 2)
Quarter: 2014Q4

REPORT INFORMATION
  Report Type: Spontaneous
  Country: US (occurrence: None)
  Receive Date: 20141014
  Receipt Date: 20141110
  Transmission Date: 20150528
  Serious: Yes (Other)
  Sender: FDA-Public Use
  Company Number: 2014-US-012751

PATIENT
  Age: 64 Year
  Sex: Female
  Weight: 104.3 kg

DRUGS (31)
  1. XYREM [Suspect]
     Active Substance: SODIUM OXYBATE
     Indication: NARCOLEPSY
     Route: 048
     Dates: start: 20140906
  2. CLONAZEPAM (CLONAZEPAM) [Concomitant]
  3. OMEPRAZOLE (OMEPRAZOLE) [Concomitant]
     Active Substance: OMEPRAZOLE
  4. LIDOCAINE HCL (LIDOCAINE HYDROCHLORIDE) [Concomitant]
  5. VITAMIN B COMPLEX [Concomitant]
     Active Substance: CYANOCOBALAMIN\DEXPANTHENOL\NIACINAMIDE\PYRIDOXINE HYDROCHLORIDE\RIBOFLAVIN 5^-PHOSPHATE SODIUM\THIAMINE HYDROCHLORIDE\VITAMIN B COMPLEX
  6. ANESTHETICS (ANESTHETICS) [Suspect]
     Active Substance: UNSPECIFIED INGREDIENT
     Indication: ANAESTHESIA
     Dosage: UNKNOWN DOSE
     Dates: start: 20140929, end: 20140929
  7. GABAPENTIN (GABAPENTIN) [Suspect]
     Active Substance: GABAPENTIN
     Indication: NEURALGIA
     Route: 048
  8. THERMAZENE (SULFADIAZINE SILVER) [Concomitant]
  9. MULTIVITAMIN (VITAMINS NOS) [Concomitant]
     Active Substance: VITAMINS
  10. OYSTER SHELL CALCIUM WITH VITAMIN D (CALCIUM CARBONATE, ERGOCALCIFEROL) [Concomitant]
  11. VITAMIN D3 [Concomitant]
     Active Substance: CHOLECALCIFEROL
  12. GABAPENTIN (GABAPENTIN) [Suspect]
     Active Substance: GABAPENTIN
     Indication: PAIN
     Route: 048
  13. BENTYL (DICYCLOVERINE HYDROCHLORIDE) [Concomitant]
  14. NUVIGIL [Concomitant]
     Active Substance: ARMODAFINIL
  15. OXYBUTYNIN (OXYBUTYNIN HYDROCHLORIDE) [Concomitant]
  16. LEVEMIR [Concomitant]
     Active Substance: INSULIN DETEMIR
  17. RANITIDINE ( RANITIDINE HYDROCHLORIDE) [Concomitant]
  18. VICODIN [Concomitant]
     Active Substance: ACETAMINOPHEN\HYDROCODONE BITARTRATE
  19. GARLIC (GARLIC) [Concomitant]
  20. POTASSIUM GLUCONATE (POTASSIUM GLUCONATE) [Concomitant]
  21. LIPITOR [Concomitant]
     Active Substance: ATORVASTATIN CALCIUM
  22. CYMBALTA [Concomitant]
     Active Substance: DULOXETINE HYDROCHLORIDE
  23. DIOVAN [Concomitant]
     Active Substance: VALSARTAN
  24. URSODIOL (URSODEOXYCHOLIC ACID) [Concomitant]
  25. ATENOLOL (ATENOLOL) [Concomitant]
     Active Substance: ATENOLOL
  26. MIRALAX (MACROGOL) [Concomitant]
  27. NOVOLOG [Concomitant]
     Active Substance: INSULIN ASPART
  28. ALOE VERA (ALOE VERA) [Concomitant]
     Active Substance: ALOE VERA LEAF
  29. ALL OTHER THERAPECTIC PRODUCTS (L-YC SUPPLEMENT) [Concomitant]
  30. VITAMIN C WITH ROSE HIPS (ASCORBIC ACID) [Concomitant]
  31. FUROSEMIDE (FUROSEMIDE) [Concomitant]
     Active Substance: FUROSEMIDE

REACTIONS (3)
  - Portal hypertensive gastropathy [None]
  - Polypectomy [None]
  - Somnolence [None]

NARRATIVE: CASE EVENT DATE: 20140929
